FAERS Safety Report 16545206 (Version 1)
Quarter: 2019Q3

REPORT INFORMATION
  Report Type: Spontaneous
  Country: US (occurrence: US)
  Receive Date: 20190709
  Receipt Date: 20190709
  Transmission Date: 20191004
  Serious: No
  Sender: FDA-Public Use
  Company Number: US-BAUSCH-BL-2019-018023

PATIENT
  Age: 57 Year
  Sex: Male

DRUGS (2)
  1. RETIN-A [Suspect]
     Active Substance: TRETINOIN
     Indication: SUNBURN
     Dosage: APPROXIMATELY 5 DAYS AGO; ONCE DAILY AT NIGHT
     Route: 061
     Dates: start: 201906
  2. RETIN-A [Suspect]
     Active Substance: TRETINOIN
     Indication: ACNE

REACTIONS (1)
  - Skin discolouration [Not Recovered/Not Resolved]

NARRATIVE: CASE EVENT DATE: 20190617
